FAERS Safety Report 4539719-0 (Version None)
Quarter: 2004Q4

REPORT INFORMATION
  Report Type: 
  Country: None (occurrence: None)
  Receive Date: 20041223
  Receipt Date: 20041208
  Transmission Date: 20050328
  Serious: Yes (Congenital Anomaly)
  Sender: FDA-Public Use
  Company Number: 9430

PATIENT

DRUGS (2)
  1. METHOTREXATE [Suspect]
  2. UNSPECIFIED ANTIEOPLASTIC AGENT [Suspect]

REACTIONS (4)
  - CONGENITAL ANOMALY [None]
  - DRUG EXPOSURE DURING PREGNANCY [None]
  - FACIAL DYSMORPHISM [None]
  - SKULL MALFORMATION [None]
